FAERS Safety Report 24079218 (Version 2)
Quarter: 2024Q3

REPORT INFORMATION
  Report Type: Spontaneous
  Country: ES (occurrence: ES)
  Receive Date: 20240711
  Receipt Date: 20240715
  Transmission Date: 20241017
  Serious: Yes (Hospitalization)
  Sender: PFIZER
  Company Number: None

PATIENT
  Age: 46 Year
  Sex: Male

DRUGS (2)
  1. KETAMINE HYDROCHLORIDE [Interacting]
     Active Substance: KETAMINE HYDROCHLORIDE
     Indication: Agitation
     Dosage: 100 MG, SINGLE
     Route: 030
     Dates: start: 20240529, end: 20240529
  2. MIDAZOLAM [Interacting]
     Active Substance: MIDAZOLAM
     Indication: Agitation
     Dosage: 1 MG, SINGLE
     Route: 030
     Dates: start: 20240529, end: 20240529

REACTIONS (4)
  - Depressed level of consciousness [Recovered/Resolved]
  - Acute respiratory failure [Recovered/Resolved]
  - Drug interaction [Unknown]
  - Off label use [Unknown]

NARRATIVE: CASE EVENT DATE: 20240529
